FAERS Safety Report 4524833-6 (Version None)
Quarter: 2004Q4

REPORT INFORMATION
  Report Type: 
  Country: None (occurrence: None)
  Receive Date: 20041213
  Receipt Date: 20041122
  Transmission Date: 20050328
  Serious: Yes (Hospitalization)
  Sender: FDA-Public Use
  Company Number: FR-BRISTOL-MYERS SQUIBB COMPANY-12777116

PATIENT
  Age: 74 Year
  Sex: Female

DRUGS (12)
  1. GLUCOPHAGE [Suspect]
     Route: 048
     Dates: end: 20040919
  2. GLYBURIDE [Suspect]
     Route: 048
     Dates: end: 20040919
  3. METOPROLOL TARTRATE [Suspect]
     Route: 048
  4. ENALAPRIL MALEATE AND HYDROCHLOROTHIAZIDE [Suspect]
     Dosage: 0.5/DAY = DOSAGE FORM
     Route: 048
  5. ELISOR [Concomitant]
     Route: 048
  6. PLAVIX [Concomitant]
     Route: 048
  7. ARIMIDEX [Concomitant]
     Route: 048
  8. ZOPICLONE [Concomitant]
     Route: 048
  9. SERESTA [Concomitant]
     Dosage: 0.5 TWICE DAILY
     Route: 048
  10. DEPAMIDE [Concomitant]
     Route: 048
  11. ANAFRANIL [Concomitant]
     Route: 048
  12. KARDEGIC [Concomitant]
     Route: 048

REACTIONS (7)
  - ABNORMAL BEHAVIOUR [None]
  - CATATONIA [None]
  - DEPRESSED LEVEL OF CONSCIOUSNESS [None]
  - DISORIENTATION [None]
  - DYSSTASIA [None]
  - HYPOGLYCAEMIA [None]
  - MEMORY IMPAIRMENT [None]
